FAERS Safety Report 9522168 (Version 1)
Quarter: 2013Q3

REPORT INFORMATION
  Report Type: Spontaneous
  Country: US (occurrence: None)
  Receive Date: 20130911
  Receipt Date: 20130911
  Transmission Date: 20140515
  Serious: Yes (Hospitalization)
  Sender: FDA-Public Use
  Company Number: UTC-037416

PATIENT
  Age: 61 Year
  Sex: Female

DRUGS (1)
  1. TYVASO (6 MICROGRAM, AEROSOL FOR INHALATION) (TREPROSTINIL SODIUM) [Suspect]
     Indication: PULMONARY ARTERIAL HYPERTENSION
     Dosage: (4 IN 1 D)
     Route: 055
     Dates: start: 20130725

REACTIONS (4)
  - Dyspnoea [None]
  - Pain [None]
  - Hypotension [None]
  - International normalised ratio increased [None]
